FAERS Safety Report 6794755-9 (Version None)
Quarter: 2010Q2

REPORT INFORMATION
  Report Type: 
  Country: None (occurrence: None)
  Receive Date: 20100520
  Receipt Date: 20090831
  Transmission Date: 20101027
  Serious: Yes (Other)
  Sender: FDA-Public Use
  Company Number: 2009262486

PATIENT
  Age: 58 Year
  Sex: Female
  Weight: 79.4 kg

DRUGS (8)
  1. PROVERA [Suspect]
     Indication: HORMONE REPLACEMENT THERAPY
     Dosage: ORAL
     Route: 048
     Dates: start: 19890101, end: 19970101
  2. PREMARIN [Suspect]
     Indication: HORMONE REPLACEMENT THERAPY
     Dates: start: 19890101, end: 19970101
  3. PREMPRO [Suspect]
     Indication: HORMONE REPLACEMENT THERAPY
     Dates: start: 19970101, end: 20030101
  4. SYNTHROID [Concomitant]
  5. ZOCOR [Concomitant]
  6. INSULIN (INSULIN) [Concomitant]
  7. HUMULIN (INSULIN HUMAN, INSULIN ISOPHANE, HUMAN BIOSYNTHETIC) [Concomitant]
  8. GLUCOPHAGE [Concomitant]

REACTIONS (1)
  - BREAST CANCER FEMALE [None]
